FAERS Safety Report 4503289-3 (Version None)
Quarter: 2004Q4

REPORT INFORMATION
  Report Type: 
  Country: None (occurrence: None)
  Receive Date: 20041112
  Receipt Date: 20041101
  Transmission Date: 20050328
  Serious: Yes (Hospitalization)
  Sender: FDA-Public Use
  Company Number: S04-USA-07286-02

PATIENT

DRUGS (1)
  1. NAMENDA [Suspect]

REACTIONS (1)
  - ARRHYTHMIA [None]
